FAERS Safety Report 9036138 (Version 1)
Quarter: 2013Q1

REPORT INFORMATION
  Report Type: Spontaneous
  Country: DE (occurrence: None)
  Receive Date: 20130116
  Receipt Date: 20130116
  Transmission Date: 20140127
  Serious: Yes (Hospitalization)
  Sender: FDA-Public Use
  Company Number: B0858411A

PATIENT
  Age: 31 Year
  Sex: Female

DRUGS (3)
  1. LAMOTRIGINE (FORMULATION UNKNOWN) (GENERIC) (LAMOTRIGINE) [Suspect]
     Indication: EPILEPSY
  2. METHSUXIMIDE (FORMULATION UNKNOWN) (METHSUXIMDE) [Suspect]
     Indication: EPILEPSY
  3. PRIMIDONE (FORMULATION UNKNOWN) (PRIMIDONE) [Suspect]
     Indication: EPILEPSY

REACTIONS (9)
  - Nausea [None]
  - Ataxia [None]
  - General physical health deterioration [None]
  - Fall [None]
  - Somnolence [None]
  - Vomiting [None]
  - Electroencephalogram abnormal [None]
  - Anticonvulsant drug level decreased [None]
  - Drug interaction [None]
